FAERS Safety Report 9585892 (Version 1)
Quarter: 2013Q4

REPORT INFORMATION
  Report Type: Spontaneous
  Country: US (occurrence: None)
  Receive Date: 20131002
  Receipt Date: 20131002
  Transmission Date: 20140711
  Serious: No
  Sender: FDA-Public Use
  Company Number: None

PATIENT
  Age: 56 Year
  Sex: Female
  Weight: 65.77 kg

DRUGS (1)
  1. PROPOFOL [Suspect]
     Indication: INDUCTION OF ANAESTHESIA
     Dosage: INDUCTION
     Route: 042
     Dates: start: 20130918, end: 20130918

REACTIONS (1)
  - Tinnitus [None]
